FAERS Safety Report 25530148 (Version 1)
Quarter: 2025Q3

REPORT INFORMATION
  Report Type: Spontaneous
  Country: US (occurrence: None)
  Receive Date: 20250708
  Receipt Date: 20250708
  Transmission Date: 20251021
  Serious: Yes (Hospitalization)
  Sender: FDA-CTU
  Company Number: None

PATIENT
  Age: 82 Year
  Sex: Male
  Weight: 90 kg

DRUGS (2)
  1. TREMELIMUMAB [Suspect]
     Active Substance: TREMELIMUMAB
     Indication: Mesothelioma
     Route: 042
     Dates: start: 20250218
  2. DURVALUMAB [Suspect]
     Active Substance: DURVALUMAB
     Indication: Mesothelioma
     Route: 042
     Dates: start: 20250218

REACTIONS (3)
  - Respiratory failure [None]
  - Pulmonary embolism [None]
  - Acute respiratory failure [None]

NARRATIVE: CASE EVENT DATE: 20250521
